FAERS Safety Report 15395373 (Version 1)
Quarter: 2018Q3

REPORT INFORMATION
  Report Type: Spontaneous
  Country: US (occurrence: US)
  Receive Date: 20180911
  Receipt Date: 20180911
  Transmission Date: 20181010
  Serious: Yes (Hospitalization)
  Sender: FDA-Public Use
  Company Number: None

PATIENT
  Age: 71 Year
  Sex: Female

DRUGS (4)
  1. PRIVIGEN [Suspect]
     Active Substance: HUMAN IMMUNOGLOBULIN G
     Indication: DEMYELINATING POLYNEUROPATHY
     Dosage: 125 G OVER 3 DAYS Q4WKS INTRAVENOUS?
     Route: 042
     Dates: start: 20180123
  2. ROSUVASTATIN TAB 5 MG [Concomitant]
  3. ASPIRIN TAB 325 MG [Concomitant]
  4. PRIVIGEN [Suspect]
     Active Substance: HUMAN IMMUNOGLOBULIN G
     Indication: DEMYELINATING POLYNEUROPATHY
     Dosage: 125 G OVER 3 DAYS Q4WKS; INTRAVENOUS?
     Route: 042
     Dates: start: 20180123

REACTIONS (1)
  - Seizure [None]

NARRATIVE: CASE EVENT DATE: 20180903
